FAERS Safety Report 8201342-4 (Version None)
Quarter: 2012Q1

REPORT INFORMATION
  Report Type: 
  Country: None (occurrence: None)
  Receive Date: 20120312
  Receipt Date: 20120302
  Transmission Date: 20120608
  Serious: Yes (Other)
  Sender: FDA-Public Use
  Company Number: DE-PURDUE-DEU-2012-0008588

PATIENT
  Sex: Male
  Weight: 80 kg

DRUGS (1)
  1. HYDROMORPHONE HCL [Suspect]
     Indication: PRODUCT USED FOR UNKNOWN INDICATION
     Dosage: 8 MG, DAILY
     Route: 048
     Dates: start: 20110817, end: 20110821

REACTIONS (1)
  - DELIRIUM [None]
